FAERS Safety Report 6370801-1 (Version None)
Quarter: 2009Q3

REPORT INFORMATION
  Report Type: 
  Country: None (occurrence: None)
  Receive Date: 20090923
  Receipt Date: 20070606
  Transmission Date: 20100115
  Serious: Yes (Hospitalization)
  Sender: FDA-Public Use
  Company Number: US-ASTRAZENECA-2006UW23974

PATIENT
  Age: 16195 Day
  Sex: Male
  Weight: 86.2 kg

DRUGS (5)
  1. SEROQUEL [Suspect]
     Indication: SCHIZOPHRENIA
     Route: 048
     Dates: start: 20040412, end: 20041111
  2. SEROQUEL [Suspect]
     Indication: OBSESSIVE-COMPULSIVE DISORDER
     Route: 048
     Dates: start: 20040412, end: 20041111
  3. GEODON [Concomitant]
     Dates: end: 20040412
  4. RISPERDAL [Concomitant]
     Dates: end: 20040412
  5. ZYPREXA [Concomitant]
     Dates: end: 20000301

REACTIONS (1)
  - TYPE 2 DIABETES MELLITUS [None]
